FAERS Safety Report 6011604-7 (Version None)
Quarter: 2008Q4

REPORT INFORMATION
  Report Type: 
  Country: None (occurrence: None)
  Receive Date: 20081218
  Receipt Date: 20080922
  Transmission Date: 20090506
  Serious: No
  Sender: FDA-Public Use
  Company Number: US-ASTRAZENECA-2008UW19740

PATIENT
  Age: 44 Year
  Sex: Male
  Weight: 77.1 kg

DRUGS (1)
  1. CRESTOR [Suspect]
     Indication: BLOOD CHOLESTEROL INCREASED
     Route: 048
     Dates: start: 20080811

REACTIONS (3)
  - PAIN IN JAW [None]
  - PARAESTHESIA [None]
  - TOOTHACHE [None]
